FAERS Safety Report 8550339-3 (Version None)
Quarter: 2012Q3

REPORT INFORMATION
  Report Type: 
  Country: None (occurrence: None)
  Receive Date: 20120730
  Receipt Date: 20120725
  Transmission Date: 20120928
  Serious: Yes (Other)
  Sender: FDA-Public Use
  Company Number: IT-PFIZER INC-2012180880

PATIENT
  Age: 64 Year
  Sex: Female

DRUGS (7)
  1. NORVASC [Concomitant]
  2. OMEPRAZOLE [Concomitant]
     Dosage: UNK
  3. ENALAPRIL MALEATE [Concomitant]
  4. FEMARA [Concomitant]
  5. ERBITUX [Suspect]
     Indication: COLON CANCER
     Dosage: 680 MG, CYCLIC
     Route: 042
     Dates: start: 20120114, end: 20120724
  6. IRINOTECAN HYDROCHLORIDE [Suspect]
     Indication: COLON CANCER
     Dosage: 310 MG, CYCLIC
     Route: 042
     Dates: start: 20120114, end: 20120724
  7. EFFEXOR [Concomitant]

REACTIONS (2)
  - RASH [None]
  - DIARRHOEA [None]
